FAERS Safety Report 9530230 (Version 2)
Quarter: 2013Q4

REPORT INFORMATION
  Report Type: Report from Study
  Country: JP (occurrence: JP)
  Receive Date: 20130917
  Receipt Date: 20131015
  Transmission Date: 20140711
  Serious: Yes (Hospitalization, Disabling)
  Sender: FDA-Public Use
  Company Number: JP-B.I. PHARMACEUTICALS,INC./RIDGEFIELD-2013-BI-28509NB

PATIENT
  Age: 62 Year
  Sex: Male
  Weight: 53 kg

DRUGS (6)
  1. TRAZENTA [Suspect]
     Indication: TYPE 2 DIABETES MELLITUS
     Dosage: 5 MG
     Route: 048
     Dates: start: 20130405
  2. DIOVAN [Concomitant]
     Dosage: 40 MG
     Route: 048
     Dates: end: 20130618
  3. AMLODIN [Concomitant]
     Dosage: 2.5 MG
     Route: 048
     Dates: end: 20130820
  4. AMARYL [Concomitant]
     Indication: TYPE 2 DIABETES MELLITUS
     Dosage: 1 MG
     Route: 048
  5. TAKEPRON [Concomitant]
     Indication: PROPHYLAXIS
     Dates: start: 20130619
  6. METGLUCO [Concomitant]
     Indication: TYPE 2 DIABETES MELLITUS
     Dosage: 1 MG
     Route: 048
     Dates: end: 20130405

REACTIONS (1)
  - Cerebral infarction [Recovered/Resolved with Sequelae]
